FAERS Safety Report 18372427 (Version 3)
Quarter: 2021Q1

REPORT INFORMATION
  Report Type: Report from Study
  Country: US (occurrence: US)
  Receive Date: 20201012
  Receipt Date: 20210108
  Transmission Date: 20210419
  Serious: Yes (Other)
  Sender: FDA-Public Use
  Company Number: US-TAKEDA-2020TUS042242

PATIENT
  Sex: Female
  Weight: 91 kg

DRUGS (5)
  1. VORTIOXETINE. [Suspect]
     Active Substance: VORTIOXETINE
     Dosage: 20 MILLIGRAM
     Route: 065
  2. JARDIANCE [Concomitant]
     Active Substance: EMPAGLIFLOZIN
     Indication: TYPE 2 DIABETES MELLITUS
     Dosage: UNK
     Route: 065
  3. TRULICITY [Suspect]
     Active Substance: DULAGLUTIDE
     Indication: TYPE 2 DIABETES MELLITUS
     Dosage: UNK
     Route: 065
  4. VORTIOXETINE. [Suspect]
     Active Substance: VORTIOXETINE
     Indication: DEPRESSION
     Dosage: 10 MILLIGRAM
     Route: 065
  5. VORTIOXETINE. [Suspect]
     Active Substance: VORTIOXETINE
     Dosage: 15 MILLIGRAM
     Route: 065

REACTIONS (16)
  - Suicidal ideation [Recovered/Resolved]
  - Anxiety [Unknown]
  - Gait disturbance [Unknown]
  - Sleep disorder [Unknown]
  - Dry mouth [Unknown]
  - Pruritus [Recovering/Resolving]
  - Abnormal dreams [Unknown]
  - Cardiac discomfort [Unknown]
  - Diarrhoea [Unknown]
  - Chest pain [Recovered/Resolved]
  - Dyspnoea [Unknown]
  - Alopecia [Recovering/Resolving]
  - Flatulence [Unknown]
  - Crying [Recovered/Resolved]
  - Drug ineffective [Unknown]
  - Dizziness [Unknown]
